FAERS Safety Report 16667985 (Version 1)
Quarter: 2019Q3

REPORT INFORMATION
  Report Type: Spontaneous
  Country: FR (occurrence: FR)
  Receive Date: 20190805
  Receipt Date: 20190805
  Transmission Date: 20191004
  Serious: Yes (Other)
  Sender: FDA-Public Use
  Company Number: FR-JNJFOC-20190802513

PATIENT
  Age: 76 Year
  Sex: Female
  Weight: 72 kg

DRUGS (6)
  1. CASPOFUNGINE [Suspect]
     Active Substance: CASPOFUNGIN
     Indication: CHOLANGITIS
     Dosage: 100 ML, 1/DAY
     Route: 042
     Dates: start: 20190605, end: 20190610
  2. PIPERACILLIN AND TAZOBACTAM [Suspect]
     Active Substance: PIPERACILLIN SODIUM\TAZOBACTAM SODIUM
     Indication: CHOLANGITIS
     Dosage: 16 G, 1/DAY
     Route: 042
     Dates: start: 20190605, end: 20190612
  3. IOMERON [Suspect]
     Active Substance: IOMEPROL
     Indication: COMPUTERISED TOMOGRAM
     Dosage: UNK
     Route: 042
     Dates: start: 20190619, end: 20190619
  4. CEFOTAXIME [Suspect]
     Active Substance: CEFOTAXIME SODIUM
     Indication: CHOLANGITIS
     Dosage: 150 ML, 1/DAY
     Route: 042
     Dates: start: 20190602, end: 20190605
  5. TRAMADOL HYDROCHLORIDE. [Suspect]
     Active Substance: TRAMADOL HYDROCHLORIDE
     Indication: PAIN
     Dosage: 100 MG, 1/DAY
     Route: 042
     Dates: start: 20190615, end: 20190622
  6. METRONIDAZOLE. [Suspect]
     Active Substance: METRONIDAZOLE
     Dosage: 300 ML, 1/DAY
     Route: 042
     Dates: start: 20190602, end: 20190605

REACTIONS (3)
  - Eosinophilia [Not Recovered/Not Resolved]
  - Pyrexia [Recovered/Resolved]
  - Rash maculo-papular [Recovering/Resolving]

NARRATIVE: CASE EVENT DATE: 20190620
